FAERS Safety Report 10501199 (Version 1)
Quarter: 2014Q4

REPORT INFORMATION
  Report Type: Spontaneous
  Country: US (occurrence: None)
  Receive Date: 20141006
  Receipt Date: 20141006
  Transmission Date: 20150528
  Serious: No
  Sender: FDA-Public Use
  Company Number: None

PATIENT
  Age: 81 Year
  Sex: Female
  Weight: 50.35 kg

DRUGS (17)
  1. CACIUMIN [Concomitant]
  2. CHLOROPHL [Concomitant]
  3. VITAMIN B12 [Concomitant]
     Active Substance: CYANOCOBALAMIN
  4. PROLIA [Suspect]
     Active Substance: DENOSUMAB
     Indication: OSTEOPOROSIS
     Dates: start: 20131022, end: 20131022
  5. VITAMIN D + ZINC [Concomitant]
  6. ULTA PERO CALCIUM [Concomitant]
  7. ULTRA OMEGA 3 [Concomitant]
  8. VITAMIN D3 [Concomitant]
     Active Substance: CHOLECALCIFEROL
  9. SIMVASTATIN. [Concomitant]
     Active Substance: SIMVASTATIN
  10. ULTRAQUINOL [Concomitant]
  11. CHOLINE + INOSITOL [Concomitant]
  12. HYSLURORIC ACID W/HIDROX [Concomitant]
  13. CALCIU + MAGNESIUM [Concomitant]
  14. ODORLESS GARLIC [Concomitant]
  15. TRI CHROMIUM [Concomitant]
  16. ALPHA LIPORI ACID [Concomitant]
  17. COMPLETE SENIOR VITAMIN + MINERAL SUPPLEMENT [Concomitant]

REACTIONS (2)
  - Osteitis [None]
  - Condition aggravated [None]
